FAERS Safety Report 6106418-3 (Version None)
Quarter: 2009Q1

REPORT INFORMATION
  Report Type: 
  Country: None (occurrence: None)
  Receive Date: 20090306
  Receipt Date: 20090219
  Transmission Date: 20090719
  Serious: Yes (Other)
  Sender: FDA-Public Use
  Company Number: AU-GENENTECH-278205

PATIENT
  Sex: Female

DRUGS (2)
  1. LUCENTIS [Suspect]
     Indication: MACULAR DEGENERATION
     Dosage: 0.05 ML, Q2M
     Route: 031
     Dates: start: 20070801
  2. LUCENTIS [Suspect]
     Dosage: UNK
     Dates: start: 20081124

REACTIONS (1)
  - EYE HAEMORRHAGE [None]
